FAERS Safety Report 15954317 (Version 1)
Quarter: 2019Q1

REPORT INFORMATION
  Report Type: Spontaneous
  Country: DE (occurrence: DE)
  Receive Date: 20190213
  Receipt Date: 20190213
  Transmission Date: 20190417
  Serious: Yes (Hospitalization)
  Sender: FDA-Public Use
  Company Number: DE-AUROBINDO-AUR-APL-2019-007411

PATIENT

DRUGS (1)
  1. LAMOTRIGINE. [Suspect]
     Active Substance: LAMOTRIGINE
     Indication: ACCIDENTAL EXPOSURE TO PRODUCT BY CHILD
     Dosage: 200-300 MG
     Route: 048
     Dates: start: 20180908, end: 20180908

REACTIONS (3)
  - Product administration error [Unknown]
  - Accidental exposure to product by child [Unknown]
  - Acidosis [Unknown]

NARRATIVE: CASE EVENT DATE: 20180908
